FAERS Safety Report 11566250 (Version 5)
Quarter: 2016Q4

REPORT INFORMATION
  Report Type: Report from Study
  Country: GB (occurrence: GB)
  Receive Date: 20150929
  Receipt Date: 20161003
  Transmission Date: 20170206
  Serious: Yes (Hospitalization, Other)
  Sender: FDA-Public Use
  Company Number: GB-ROCHE-1638943

PATIENT
  Sex: Male

DRUGS (4)
  1. ESBRIET [Suspect]
     Active Substance: PIRFENIDONE
     Route: 048
     Dates: start: 20141006
  2. ESBRIET [Suspect]
     Active Substance: PIRFENIDONE
     Indication: IDIOPATHIC PULMONARY FIBROSIS
     Dosage: 7 TABLETS OF 267 MG A DAY
     Route: 048
  3. ESBRIET [Suspect]
     Active Substance: PIRFENIDONE
     Route: 048
  4. ESBRIET [Suspect]
     Active Substance: PIRFENIDONE
     Dosage: 2 MORNING, 3 AFTERNOON AND 2 IN THE EVENING.
     Route: 048

REACTIONS (8)
  - Fatigue [Not Recovered/Not Resolved]
  - Feeling hot [Unknown]
  - Pulmonary function test decreased [Unknown]
  - Peripheral swelling [Unknown]
  - Liver function test increased [Recovered/Resolved]
  - Pneumothorax [Recovering/Resolving]
  - Frustration tolerance decreased [Unknown]
  - Asthenia [Unknown]

NARRATIVE: CASE EVENT DATE: 20150710
